FAERS Safety Report 17883121 (Version 1)
Quarter: 2020Q2

REPORT INFORMATION
  Report Type: Spontaneous
  Country: CH (occurrence: CH)
  Receive Date: 20200611
  Receipt Date: 20200611
  Transmission Date: 20200714
  Serious: Yes (Hospitalization)
  Sender: FDA-Public Use
  Company Number: CH-TEVA-2020-CH-1246538

PATIENT
  Sex: Female
  Weight: 77 kg

DRUGS (6)
  1. ASPIRIN CARDIO [Suspect]
     Active Substance: ASPIRIN
     Route: 048
  2. SYMBICORT [Concomitant]
     Active Substance: BUDESONIDE\FORMOTEROL FUMARATE DIHYDRATE
     Dosage: 200/6
     Route: 055
     Dates: start: 20200116, end: 20200129
  3. DAFALGAN [Concomitant]
     Active Substance: ACETAMINOPHEN
     Indication: BACK PAIN
     Dosage: AS NECESSARY
     Route: 048
     Dates: start: 20200116, end: 20200129
  4. CUBICIN [Concomitant]
     Active Substance: DAPTOMYCIN
     Route: 041
     Dates: start: 20200217, end: 20200302
  5. CO-AMOXI [Suspect]
     Active Substance: AMOXICILLIN\CLAVULANATE POTASSIUM
     Route: 065
  6. VOTUM (OLMESARTAN MEDOXOMIL) [Suspect]
     Active Substance: OLMESARTAN MEDOXOMIL
     Route: 048

REACTIONS (1)
  - Skin reaction [Not Recovered/Not Resolved]
